FAERS Safety Report 5716291-0 (Version None)
Quarter: 2008Q2

REPORT INFORMATION
  Report Type: 
  Country: None (occurrence: None)
  Receive Date: 20080424
  Receipt Date: 20080416
  Transmission Date: 20081010
  Serious: Yes (Death, Life-Threatening)
  Sender: FDA-Public Use
  Company Number: B0517829A

PATIENT
  Age: 35 Year
  Sex: Female

DRUGS (3)
  1. ALBENDAZOLE [Suspect]
     Indication: FILARIASIS LYMPHATIC
     Dosage: 1TAB SINGLE DOSE
     Route: 048
     Dates: start: 20070623, end: 20070623
  2. DIETHYLCARBAMAZINE CITRATE [Suspect]
     Indication: FILARIASIS LYMPHATIC
     Dosage: 3TAB SINGLE DOSE
     Route: 048
     Dates: start: 20070623, end: 20070623
  3. NO CONCURRENT MEDICATION [Concomitant]

REACTIONS (10)
  - ABDOMINAL PAIN UPPER [None]
  - ASTHENIA [None]
  - BLOOD ELECTROLYTES ABNORMAL [None]
  - DEHYDRATION [None]
  - DIZZINESS [None]
  - GASTRITIS [None]
  - HYPOVOLAEMIC SHOCK [None]
  - NAUSEA [None]
  - SOMNOLENCE [None]
  - VOMITING [None]
